FAERS Safety Report 14240225 (Version 1)
Quarter: 2017Q4

REPORT INFORMATION
  Report Type: Spontaneous
  Country: US (occurrence: US)
  Receive Date: 20171129
  Receipt Date: 20171129
  Transmission Date: 20180321
  Serious: Yes (Hospitalization)
  Sender: FDA-Public Use
  Company Number: None

PATIENT
  Age: 58 Year
  Sex: Female
  Weight: 49.5 kg

DRUGS (1)
  1. IBANDRONATE SODIUM TABLET [Suspect]
     Active Substance: IBANDRONATE SODIUM
     Indication: OSTEOPOROSIS
     Dosage: ?          QUANTITY:1 TABLET(S);OTHER FREQUENCY:MONTH;?
     Route: 048
     Dates: start: 20170305, end: 20171105

REACTIONS (2)
  - Pathological fracture [None]
  - Femur fracture [None]

NARRATIVE: CASE EVENT DATE: 20171123
